FAERS Safety Report 7421295-6 (Version None)
Quarter: 2011Q2

REPORT INFORMATION
  Report Type: 
  Country: None (occurrence: None)
  Receive Date: 20110418
  Receipt Date: 20110407
  Transmission Date: 20111010
  Serious: Yes (Hospitalization)
  Sender: FDA-Public Use
  Company Number: JP-MERCK-1102USA02547

PATIENT
  Age: 33 Year
  Sex: Female
  Weight: 43 kg

DRUGS (24)
  1. LOXONIN [Concomitant]
     Indication: DEAFNESS
     Route: 048
     Dates: start: 20080817, end: 20080822
  2. MUCOSTA [Concomitant]
     Indication: DEAFNESS
     Route: 048
     Dates: start: 20080817
  3. PEPCID RPD [Suspect]
     Indication: DEAFNESS
     Route: 048
     Dates: start: 20080817
  4. NEUROTROPIN [Concomitant]
     Indication: TONSILLITIS
     Route: 048
     Dates: start: 20080817, end: 20080822
  5. PONTAL [Concomitant]
     Indication: TONSILLITIS
     Route: 048
     Dates: start: 20080825, end: 20080827
  6. DEPAS [Concomitant]
     Indication: TONSILLITIS
     Route: 048
     Dates: start: 20080817, end: 20080822
  7. MIYA BM [Concomitant]
     Indication: DEAFNESS
     Route: 048
     Dates: start: 20080817, end: 20080822
  8. IBRUPROFEN [Concomitant]
     Indication: TONSILLITIS
     Route: 048
     Dates: start: 20080822, end: 20080827
  9. PRIMPERAN TAB [Concomitant]
     Indication: TONSILLITIS
     Route: 065
     Dates: start: 20080717
  10. DEPAS [Concomitant]
     Indication: DEAFNESS
     Route: 048
     Dates: start: 20080817, end: 20080822
  11. MUCOSTA [Concomitant]
     Indication: TONSILLITIS
     Route: 048
     Dates: start: 20080817
  12. METHISTA [Concomitant]
     Indication: TONSILLITIS
     Route: 048
     Dates: start: 20080717, end: 20080827
  13. NEUROTROPIN [Concomitant]
     Indication: DEAFNESS
     Route: 048
     Dates: start: 20080817, end: 20080822
  14. MIYA BM [Concomitant]
     Indication: TONSILLITIS
     Route: 048
     Dates: start: 20080817, end: 20080822
  15. PRIMPERAN TAB [Concomitant]
     Indication: DEAFNESS
     Route: 065
     Dates: start: 20080717
  16. LOXONIN [Concomitant]
     Indication: TONSILLITIS
     Route: 048
     Dates: start: 20080817, end: 20080822
  17. IBRUPROFEN [Concomitant]
     Indication: DEAFNESS
     Route: 048
     Dates: start: 20080822, end: 20080827
  18. PONTAL [Concomitant]
     Indication: DEAFNESS
     Route: 048
     Dates: start: 20080825, end: 20080827
  19. PEPCID RPD [Suspect]
     Indication: TONSILLITIS
     Route: 048
     Dates: start: 20080817
  20. FLURBIPROFEN [Concomitant]
     Indication: TONSILLITIS
     Route: 051
     Dates: start: 20080817, end: 20080817
  21. FLURBIPROFEN [Concomitant]
     Indication: DEAFNESS
     Route: 051
     Dates: start: 20080817, end: 20080817
  22. MEIACT [Concomitant]
     Indication: TONSILLITIS
     Route: 048
     Dates: start: 20080717, end: 20080827
  23. MEIACT [Concomitant]
     Indication: DEAFNESS
     Route: 048
     Dates: start: 20080717, end: 20080827
  24. METHISTA [Concomitant]
     Indication: DEAFNESS
     Route: 048
     Dates: start: 20080717, end: 20080827

REACTIONS (1)
  - ERYTHEMA NODOSUM [None]
